FAERS Safety Report 8274331-1 (Version None)
Quarter: 2012Q2

REPORT INFORMATION
  Report Type: 
  Country: None (occurrence: None)
  Receive Date: 20120411
  Receipt Date: 20120402
  Transmission Date: 20120825
  Serious: Yes (Disabling, Other)
  Sender: FDA-Public Use
  Company Number: JP-ROCHE-1057904

PATIENT
  Age: 64 Year
  Sex: Male

DRUGS (6)
  1. ACTIVASE [Suspect]
     Indication: THROMBOTIC CEREBRAL INFARCTION
     Route: 042
     Dates: start: 20110512, end: 20110512
  2. CILOSTAZOL [Concomitant]
     Route: 048
     Dates: start: 20110520
  3. RADICUT [Concomitant]
     Route: 041
     Dates: start: 20110512, end: 20110519
  4. ACTIVASE [Suspect]
     Indication: CEREBRAL INFARCTION
  5. CLOPIDOGREL [Concomitant]
     Route: 048
     Dates: start: 20110525
  6. ACTIVASE [Suspect]
     Indication: DIABETES MELLITUS

REACTIONS (3)
  - HAEMORRHAGIC CEREBRAL INFARCTION [None]
  - CEREBRAL HAEMORRHAGE [None]
  - EPILEPSY [None]
